FAERS Safety Report 17735644 (Version 1)
Quarter: 2020Q2

REPORT INFORMATION
  Report Type: Report from Study
  Country: IT (occurrence: IT)
  Receive Date: 20200501
  Receipt Date: 20200501
  Transmission Date: 20200714
  Serious: Yes (Hospitalization)
  Sender: FDA-Public Use
  Company Number: IT-TEVA-2020-IT-1228247

PATIENT
  Age: 76 Year
  Sex: Female

DRUGS (5)
  1. KARVEZIDE [Suspect]
     Active Substance: HYDROCHLOROTHIAZIDE\IRBESARTAN
     Indication: HYPERTENSION
     Route: 048
     Dates: start: 20200206, end: 20200217
  2. ATENOL 100 MG COMPRESSE 50 COMPRESSE [Suspect]
     Active Substance: ATENOLOL
     Indication: HYPERTENSION
     Dates: end: 20200217
  3. EUTIROX 100 MICROGRAMMI COMPRESSE [Concomitant]
     Active Substance: LEVOTHYROXINE SODIUM
  4. CARDURA [Suspect]
     Active Substance: DOXAZOSIN MESYLATE
     Indication: HYPERTENSION
     Route: 048
     Dates: start: 20200206, end: 20200217
  5. REXTAT 40 MG COMPRESSE [Concomitant]

REACTIONS (3)
  - Hypotension [Recovering/Resolving]
  - Vomiting [Recovering/Resolving]
  - Syncope [Recovering/Resolving]

NARRATIVE: CASE EVENT DATE: 20200217
